FAERS Safety Report 4263717-8 (Version None)
Quarter: 2004Q1

REPORT INFORMATION
  Report Type: 
  Country: None (occurrence: None)
  Receive Date: 20040102
  Receipt Date: 20031211
  Transmission Date: 20041129
  Serious: Yes (Death)
  Sender: FDA-Public Use
  Company Number: DE_031112335

PATIENT
  Age: 52 Year
  Sex: Male
  Weight: 63 kg

DRUGS (2)
  1. ZYPREXA [Suspect]
     Indication: SCHIZOPHRENIA, PARANOID TYPE
     Dosage: 5 MG/DAY
     Dates: start: 20030501
  2. ZELDOX (ZIPRASIDONE HYDROCHLORIDE) [Concomitant]

REACTIONS (4)
  - APATHY [None]
  - COMPLETED SUICIDE [None]
  - FEELING OF DESPAIR [None]
  - TREATMENT NONCOMPLIANCE [None]
